FAERS Safety Report 6371748-7 (Version None)
Quarter: 2009Q3

REPORT INFORMATION
  Report Type: 
  Country: None (occurrence: None)
  Receive Date: 20090923
  Receipt Date: 20090910
  Transmission Date: 20100115
  Serious: Yes (Hospitalization, Congenital Anomaly, Other)
  Sender: FDA-Public Use
  Company Number: US-ROCHE-640956

PATIENT
  Sex: Female

DRUGS (8)
  1. MYCOPHENOLATE MOFETIL [Suspect]
     Route: 064
  2. MYCOPHENOLATE MOFETIL [Suspect]
     Dosage: DOSE REDUCED
     Route: 064
  3. SULFAMETHOXAZOLE AND TRIMETHOPRIM [Suspect]
     Indication: INFECTION PROPHYLAXIS
     Route: 064
  4. PROGRAF [Suspect]
     Route: 064
  5. PREDNISONE [Suspect]
     Route: 064
  6. NYSTATIN [Suspect]
     Indication: INFECTION PROPHYLAXIS
     Route: 064
  7. ACYCLOVIR [Suspect]
     Indication: INFECTION PROPHYLAXIS
     Route: 064
  8. FOLIC ACID [Concomitant]

REACTIONS (17)
  - ANOTIA [None]
  - CARDIOPULMONARY FAILURE [None]
  - CATARACT CONGENITAL [None]
  - CENTRAL NERVOUS SYSTEM NECROSIS [None]
  - CLEFT LIP AND PALATE [None]
  - COLOBOMA [None]
  - CONGENITAL MUSCULOSKELETAL ANOMALY [None]
  - HEART DISEASE CONGENITAL [None]
  - HYPERTELORISM OF ORBIT [None]
  - INTESTINAL MALROTATION [None]
  - MICROGNATHIA [None]
  - MICROPHTHALMOS [None]
  - MICROTIA [None]
  - PNEUMONIA [None]
  - PULMONARY HYPERTENSIVE CRISIS [None]
  - PULMONARY VASCULAR DISORDER [None]
  - RESPIRATORY DISTRESS [None]
